FAERS Safety Report 24130447 (Version 2)
Quarter: 2024Q3

REPORT INFORMATION
  Report Type: Report from Study
  Country: IN (occurrence: IN)
  Receive Date: 20240724
  Receipt Date: 20240816
  Transmission Date: 20241017
  Serious: Yes (Death)
  Sender: Vantive US Healthcare
  Company Number: IN-BAXTER-2024VAN018408

PATIENT
  Age: 56 Year
  Sex: Female

DRUGS (2)
  1. DIANEAL PD-2 PERITONEAL DIALYSIS SOLUTION WITH DEXTROSE [Suspect]
     Active Substance: CALCIUM CHLORIDE\DEXTROSE\MAGNESIUM CHLORIDE\SODIUM CHLORIDE\SODIUM LACTATE
     Indication: Renal failure
     Dosage: 3 BAGS
     Route: 033
     Dates: end: 20240713
  2. UNSPECIFIED INGREDIENT [Suspect]
     Active Substance: UNSPECIFIED INGREDIENT
     Route: 065

REACTIONS (3)
  - Pyrexia [Fatal]
  - Therapy interrupted [Unknown]
  - Inadequate peritoneal dialysis [Not Recovered/Not Resolved]

NARRATIVE: CASE EVENT DATE: 20240713
